FAERS Safety Report 8921597 (Version 2)
Quarter: 2012Q4

REPORT INFORMATION
  Report Type: 
  Country: PR (occurrence: PR)
  Receive Date: 20121121
  Receipt Date: 20121128
  Transmission Date: 20130627
  Serious: Yes (Hospitalization)
  Sender: FDA-Public Use
  Company Number: PR-ABBOTT-12P-131-0970990-00

PATIENT
  Age: 55 None
  Sex: Female
  Weight: 88.08 kg

DRUGS (4)
  1. HUMIRA [Suspect]
     Indication: RHEUMATOID ARTHRITIS
     Route: 058
     Dates: start: 2010, end: 20121103
  2. PLAQUENIL [Concomitant]
     Indication: RHEUMATOID ARTHRITIS
     Route: 048
  3. PAXIL [Concomitant]
     Indication: DEPRESSION
     Route: 048
  4. KLONOPIN [Concomitant]
     Indication: DEPRESSION
     Route: 048

REACTIONS (12)
  - Spinal column injury [Not Recovered/Not Resolved]
  - Nasopharyngitis [Recovered/Resolved]
  - Pharyngitis [Recovered/Resolved]
  - Urinary tract infection [Unknown]
  - Pruritus generalised [Recovered/Resolved]
  - Spinal column injury [Recovered/Resolved]
  - Road traffic accident [Recovered/Resolved]
  - Muscle spasms [Not Recovered/Not Resolved]
  - Headache [Recovered/Resolved]
  - Neck mass [Unknown]
  - Inappropriate schedule of drug administration [Unknown]
  - Bone pain [Unknown]
